FAERS Safety Report 8605880-1 (Version None)
Quarter: 2012Q3

REPORT INFORMATION
  Report Type: 
  Country: None (occurrence: None)
  Receive Date: 20120820
  Receipt Date: 20120810
  Transmission Date: 20120928
  Serious: Yes (Hospitalization, Congenital Anomaly)
  Sender: FDA-Public Use
  Company Number: US-GLAXOSMITHKLINE-A0990117A

PATIENT
  Sex: Male

DRUGS (1)
  1. PAXIL [Suspect]
     Indication: PRODUCT USED FOR UNKNOWN INDICATION
     Route: 064

REACTIONS (5)
  - SEPSIS [None]
  - ATRIAL SEPTAL DEFECT [None]
  - PULMONARY HYPERTENSION [None]
  - FOETAL EXPOSURE DURING PREGNANCY [None]
  - HYPOXIC-ISCHAEMIC ENCEPHALOPATHY [None]
